FAERS Safety Report 6967312-9 (Version None)
Quarter: 2010Q3

REPORT INFORMATION
  Report Type: 
  Country: None (occurrence: None)
  Receive Date: 20100907
  Receipt Date: 20100825
  Transmission Date: 20110219
  Serious: No
  Sender: FDA-Public Use
  Company Number: US-JNJFOC-20100900414

PATIENT
  Sex: Male
  Weight: 127.01 kg

DRUGS (5)
  1. FENTANYL CITRATE [Suspect]
     Indication: BACK PAIN
     Route: 062
  2. FENTANYL CITRATE [Suspect]
     Indication: BACK PAIN
     Route: 062
  3. INSULIN [Concomitant]
     Indication: DIABETES MELLITUS
     Dosage: 26 UNITS
     Route: 058
  4. INSULIN [Concomitant]
     Dosage: 44 UNITS
     Route: 058
  5. VITAMIN D [Concomitant]
     Dosage: 3000 UNIT
     Route: 048

REACTIONS (5)
  - DIABETES MELLITUS MANAGEMENT [None]
  - DRUG ADMINISTERED AT INAPPROPRIATE SITE [None]
  - DRUG DOSE OMISSION [None]
  - PAIN [None]
  - WRONG TECHNIQUE IN DRUG USAGE PROCESS [None]
